FAERS Safety Report 7830185-6 (Version None)
Quarter: 2011Q4

REPORT INFORMATION
  Report Type: 
  Country: None (occurrence: None)
  Receive Date: 20111021
  Receipt Date: 20111011
  Transmission Date: 20120403
  Serious: Yes (Other)
  Sender: FDA-Public Use
  Company Number: PHHY2011BR91055

PATIENT
  Sex: Female

DRUGS (4)
  1. WARFARIN SODIUM [Concomitant]
     Dosage: 5 MG
  2. DIOVAN HCT [Suspect]
     Dosage: 1 DF, (160/12.5 MG)
  3. ATENOLOL [Suspect]
     Dosage: 50 MG
  4. AMLODIPINE [Concomitant]
     Dosage: 5 MG

REACTIONS (1)
  - CEREBROVASCULAR ACCIDENT [None]
